FAERS Safety Report 17467493 (Version 1)
Quarter: 2020Q1

REPORT INFORMATION
  Report Type: Spontaneous
  Country: US (occurrence: US)
  Receive Date: 20200226
  Receipt Date: 20200226
  Transmission Date: 20200409
  Serious: Yes (Other)
  Sender: FDA-Public Use
  Company Number: None

PATIENT
  Age: 61 Year
  Sex: Female
  Weight: 68.58 kg

DRUGS (18)
  1. CALCIUM + VITAMIN D [Concomitant]
     Active Substance: CALCIUM\VITAMIN D
  2. LASIX [Concomitant]
     Active Substance: FUROSEMIDE
  3. NORCO [Concomitant]
     Active Substance: ACETAMINOPHEN\HYDROCODONE BITARTRATE
  4. ONDANSETRON [Concomitant]
     Active Substance: ONDANSETRON
  5. PRAVASTATIN. [Concomitant]
     Active Substance: PRAVASTATIN
  6. DESOXIMETASONE. [Concomitant]
     Active Substance: DESOXIMETASONE
  7. LEXAPRO [Concomitant]
     Active Substance: ESCITALOPRAM OXALATE
  8. ASPIRIN. [Concomitant]
     Active Substance: ASPIRIN
  9. LISINOPRIL. [Concomitant]
     Active Substance: LISINOPRIL
  10. MULTIVITAMIN [Concomitant]
     Active Substance: VITAMINS
  11. FERROUS SULFATE. [Concomitant]
     Active Substance: FERROUS SULFATE
  12. LETROZOLE. [Concomitant]
     Active Substance: LETROZOLE
  13. GLIPIZIDE. [Concomitant]
     Active Substance: GLIPIZIDE
  14. XARELTO [Concomitant]
     Active Substance: RIVAROXABAN
  15. PIQRAY [Suspect]
     Active Substance: ALPELISIB
     Indication: BREAST CANCER STAGE IV
     Route: 048
     Dates: start: 20190715, end: 20190917
  16. CARVEDILOL. [Concomitant]
     Active Substance: CARVEDILOL
  17. FENTANYL. [Concomitant]
     Active Substance: FENTANYL
  18. METFORMIN [Concomitant]
     Active Substance: METFORMIN HYDROCHLORIDE

REACTIONS (2)
  - Hyperglycaemia [None]
  - Hepatotoxicity [None]

NARRATIVE: CASE EVENT DATE: 20190808
